FAERS Safety Report 20623726 (Version 1)
Quarter: 2022Q1

REPORT INFORMATION
  Report Type: Spontaneous
  Country: KR (occurrence: KR)
  Receive Date: 20220322
  Receipt Date: 20220322
  Transmission Date: 20220423
  Serious: Yes (Hospitalization)
  Sender: FDA-Public Use
  Company Number: KR-009507513-2002KOR006538

PATIENT
  Age: 74 Year
  Sex: Male
  Weight: 44.7 kg

DRUGS (3)
  1. KEYTRUDA [Suspect]
     Active Substance: PEMBROLIZUMAB
     Dosage: 2 MILLIGRAM/KILOGRAM, Q3W
     Route: 042
     Dates: start: 20180917, end: 20180917
  2. KEYTRUDA [Suspect]
     Active Substance: PEMBROLIZUMAB
     Dosage: 2 MILLIGRAM/KILOGRAM, Q3W
     Route: 042
     Dates: start: 20181005, end: 20181005
  3. ELIQUIS [Concomitant]
     Active Substance: APIXABAN
     Indication: Aortic thrombosis
     Dosage: 1 DOSAGE FORM, BID
     Route: 048
     Dates: start: 20180919, end: 20181005

REACTIONS (2)
  - Radius fracture [Recovered/Resolved]
  - Inappropriate schedule of product administration [Unknown]

NARRATIVE: CASE EVENT DATE: 20180926
